FAERS Safety Report 5451733-X (Version None)
Quarter: 2007Q3

REPORT INFORMATION
  Report Type: 
  Country: None (occurrence: None)
  Receive Date: 20070913
  Receipt Date: 20070904
  Transmission Date: 20080115
  Serious: Yes (Hospitalization)
  Sender: FDA-Public Use
  Company Number: ES-PFIZER INC-2007073163

PATIENT
  Age: 75 Year
  Sex: Male

DRUGS (5)
  1. ALDACTONE [Suspect]
     Indication: BILIARY CIRRHOSIS PRIMARY
     Route: 048
     Dates: start: 20070101, end: 20070322
  2. ACTONEL [Concomitant]
     Dosage: DAILY DOSE:35MG
     Route: 048
  3. DUPHALAC [Concomitant]
     Route: 048
  4. PANTECTA [Concomitant]
     Dosage: DAILY DOSE:20MG
     Route: 048
  5. OSTINE [Concomitant]
     Route: 048

REACTIONS (2)
  - HEPATIC ENCEPHALOPATHY [None]
  - HYPERKALAEMIA [None]
